FAERS Safety Report 8342804 (Version 2)
Quarter: 2013Q2

REPORT INFORMATION
  Report Type: Spontaneous
  Country: BR (occurrence: BR)
  Receive Date: 20120119
  Receipt Date: 20130409
  Transmission Date: 20140414
  Serious: Yes (Death, Hospitalization, Other)
  Sender: FDA-Public Use
  Company Number: BR-AMGEN-BRASP2012002244

PATIENT
  Age: 58 Year
  Sex: Female
  Weight: 115 kg

DRUGS (1)
  1. ENBREL [Suspect]
     Indication: RHEUMATOID ARTHRITIS
     Dosage: 25 MG, 2X/WEEK
     Route: 058
     Dates: start: 200910

REACTIONS (7)
  - Death [Fatal]
  - Nausea [Unknown]
  - Cholelithiasis [Unknown]
  - Renal impairment [Recovered/Resolved]
  - Blood glucose decreased [Not Recovered/Not Resolved]
  - Blood pressure abnormal [Not Recovered/Not Resolved]
  - Erysipelas [Unknown]
